FAERS Safety Report 26098856 (Version 1)
Quarter: 2025Q4

REPORT INFORMATION
  Report Type: Spontaneous
  Country: GB (occurrence: GB)
  Receive Date: 20251127
  Receipt Date: 20251127
  Transmission Date: 20260117
  Serious: Yes (Hospitalization)
  Sender: ALKEM
  Company Number: None

PATIENT
  Age: 63 Year
  Sex: Female

DRUGS (4)
  1. MYCOPHENOLATE MOFETIL [Suspect]
     Active Substance: MYCOPHENOLATE MOFETIL
     Indication: Renal transplant
     Dosage: 500 MILLIGRAM, BID
     Route: 048
  2. TACROLIMUS [Suspect]
     Active Substance: TACROLIMUS
     Indication: Immunosuppressant drug therapy
     Dosage: 1 MILLIGRAM (1 MG CAPSULE HARD)
     Route: 065
  3. TACROLIMUS [Suspect]
     Active Substance: TACROLIMUS
     Indication: Renal transplant
     Dosage: 2 MILLIGRAM (1 MG CAPSULE HARD)
     Route: 065
  4. TACROLIMUS [Suspect]
     Active Substance: TACROLIMUS
     Dosage: 0.5 MILLIGRAM (0.5 MG CAPSULE HARD)
     Route: 065

REACTIONS (3)
  - Infection [Unknown]
  - Therapy change [Unknown]
  - Incorrect dose administered [Unknown]
